FAERS Safety Report 4844589-7 (Version None)
Quarter: 2005Q4

REPORT INFORMATION
  Report Type: 
  Country: None (occurrence: None)
  Receive Date: 20051125
  Receipt Date: 20051111
  Transmission Date: 20060501
  Serious: Yes (Hospitalization)
  Sender: FDA-Public Use
  Company Number: US200511000108

PATIENT
  Age: 36 Year
  Sex: Female

DRUGS (5)
  1. HUMATROPE [Suspect]
     Indication: BLOOD GROWTH HORMONE DECREASED
     Dosage: SEE IMAGE, SUBCUTANEOUS
     Route: 058
     Dates: start: 20050301, end: 20051109
  2. HUMATROPE [Suspect]
     Indication: BLOOD GROWTH HORMONE DECREASED
     Dosage: SEE IMAGE, SUBCUTANEOUS
     Route: 058
     Dates: start: 20051109
  3. HUMATROPEN (HUMATROPEN) PEN, REUSABLE [Concomitant]
  4. ATIVAN [Concomitant]
  5. THYROXIN (LEVOTHYROXINE SODIUM) [Concomitant]

REACTIONS (6)
  - ANXIETY [None]
  - BLOOD GROWTH HORMONE DECREASED [None]
  - POST PROCEDURAL COMPLICATION [None]
  - THYROIDECTOMY [None]
  - THYROXINE ABNORMAL [None]
  - THYROXINE INCREASED [None]
